FAERS Safety Report 26094867 (Version 1)
Quarter: 2025Q4

REPORT INFORMATION
  Report Type: Spontaneous
  Country: CN (occurrence: CN)
  Receive Date: 20251126
  Receipt Date: 20251126
  Transmission Date: 20260118
  Serious: Yes (Hospitalization)
  Sender: ABBVIE
  Company Number: CN-ABBVIE-6563026

PATIENT
  Age: 72 Year
  Sex: Female
  Weight: 39 kg

DRUGS (3)
  1. VENETOCLAX [Suspect]
     Active Substance: VENETOCLAX
     Indication: Targeted cancer therapy
     Dosage: 100 MILLIGRAM
     Route: 048
     Dates: start: 20251030, end: 20251109
  2. AZACITIDINE [Concomitant]
     Active Substance: AZACITIDINE
     Indication: Targeted cancer therapy
     Dosage: 100 MILLIGRAM
     Route: 058
     Dates: start: 20251030, end: 20251108
  3. CYTARABINE [Concomitant]
     Active Substance: CYTARABINE
     Indication: Product used for unknown indication
     Dates: start: 20251030

REACTIONS (1)
  - Myelosuppression [Not Recovered/Not Resolved]

NARRATIVE: CASE EVENT DATE: 20251103
